FAERS Safety Report 7403553-4 (Version None)
Quarter: 2011Q2

REPORT INFORMATION
  Report Type: 
  Country: None (occurrence: None)
  Receive Date: 20110408
  Receipt Date: 20110314
  Transmission Date: 20111010
  Serious: Yes (Hospitalization, Other)
  Sender: FDA-Public Use
  Company Number: PHBS2007JP13639

PATIENT
  Sex: Male
  Weight: 61 kg

DRUGS (35)
  1. CYCLOSPORINE [Suspect]
     Indication: HEART TRANSPLANT
     Dosage: 200 MG/DAY
     Route: 048
     Dates: start: 20021114, end: 20021114
  2. CYCLOSPORINE [Suspect]
     Dosage: 250 MG/DAY
     Route: 048
     Dates: start: 20021116, end: 20021116
  3. CYCLOSPORINE [Suspect]
     Dosage: 375 MG/DAY
     Route: 048
     Dates: start: 20021123, end: 20021123
  4. CYCLOSPORINE [Suspect]
     Dosage: 300 MG/DAY
     Route: 048
     Dates: start: 20021125, end: 20021130
  5. CYCLOSPORINE [Suspect]
     Dosage: 150 MG/DAY
     Dates: start: 20060511, end: 20070608
  6. CYCLOSPORINE [Suspect]
     Dosage: 150 MG/DAY
     Route: 048
     Dates: start: 20101029
  7. CERTICAN [Suspect]
     Indication: HEART TRANSPLANT
     Dosage: 1 MG/D
     Route: 048
     Dates: start: 20070319, end: 20110130
  8. CERTICAN [Suspect]
     Dosage: 1.25 MG/D
     Route: 048
     Dates: start: 20070615
  9. CYCLOSPORINE [Suspect]
     Dosage: 425 MG/DAY
     Route: 048
     Dates: start: 20021118, end: 20021118
  10. CYCLOSPORINE [Suspect]
     Dosage: 200 MG/DAY
     Route: 048
     Dates: start: 20031024, end: 20040207
  11. CYCLOSPORINE [Suspect]
     Dosage: 175 MG/DAY
     Route: 048
     Dates: start: 20070609, end: 20080117
  12. CERTICAN [Suspect]
     Dosage: 1 MG/D
     Route: 048
     Dates: start: 20070419, end: 20070527
  13. CYCLOSPORINE [Suspect]
     Dosage: 325 MG/DAY
     Route: 048
     Dates: start: 20021124, end: 20021124
  14. CYCLOSPORINE [Suspect]
     Dosage: 250 MG/DAY
     Route: 048
     Dates: start: 20021220, end: 20030804
  15. EPADEL [Concomitant]
     Indication: HYPERLIPIDAEMIA
     Dosage: 1800 MG/DAY
     Route: 048
     Dates: start: 20060123
  16. CERTICAN [Suspect]
     Dosage: 1.5 MG/D
     Route: 048
     Dates: start: 20070528, end: 20070614
  17. CYCLOSPORINE [Suspect]
     Dosage: 210 MG/DAY
     Route: 048
     Dates: start: 20021206, end: 20021206
  18. CYCLOSPORINE [Suspect]
     Dosage: 225 MG/DAY
     Route: 048
     Dates: start: 20030805, end: 20031023
  19. CYCLOSPORINE [Suspect]
     Dosage: 175 MG/DAY
     Route: 048
     Dates: start: 20040208, end: 20060510
  20. CYCLOSPORINE [Suspect]
     Dosage: 450 MG/DAY
     Route: 048
     Dates: start: 20021119, end: 20021121
  21. CYCLOSPORINE [Suspect]
     Dosage: 250 MG/DAY
     Route: 048
     Dates: start: 20021201, end: 20021204
  22. CYCLOSPORINE [Suspect]
     Dosage: 150 MG/DAY
     Route: 048
     Dates: start: 20080118, end: 20080313
  23. CERTICAN [Suspect]
     Dosage: 1.5 MG/D
     Route: 048
     Dates: start: 20070417, end: 20070418
  24. CYCLOSPORINE [Suspect]
     Dosage: 125 MG/DAY
     Route: 048
     Dates: start: 20080314, end: 20101028
  25. CELLCEPT [Suspect]
     Dosage: 1.5 G/DAY
     Route: 048
     Dates: start: 20060520
  26. NORVASC [Concomitant]
     Indication: HYPERTENSION
     Dosage: 5 MG/DAY
     Route: 048
     Dates: start: 20021119
  27. CYCLOSPORINE [Suspect]
     Dosage: 425 MG/DAY
     Route: 048
     Dates: start: 20021122, end: 20021122
  28. CYCLOSPORINE [Suspect]
     Dosage: 225 MG/DAY
     Route: 048
     Dates: start: 20021219, end: 20021219
  29. CELLCEPT [Suspect]
     Indication: HEART TRANSPLANT
     Dosage: 2 G/DAY
     Route: 048
     Dates: start: 20021114, end: 20110131
  30. CYCLOSPORINE [Suspect]
     Dosage: 225 MG/DAY
     Route: 048
     Dates: start: 20021115, end: 20021115
  31. CYCLOSPORINE [Suspect]
     Dosage: 350 MG/DAY
     Route: 048
     Dates: start: 20021117, end: 20021117
  32. CYCLOSPORINE [Suspect]
     Dosage: 225 MG/DAY
     Route: 048
     Dates: start: 20021205, end: 20021205
  33. CYCLOSPORINE [Suspect]
     Dosage: 220 MG/DAY
     Route: 048
     Dates: start: 20021207, end: 20021208
  34. PREDONINE [Suspect]
     Indication: HEART TRANSPLANT
     Dosage: 5 MG, UNK
     Route: 048
     Dates: start: 20021114, end: 20110131
  35. PROGRAF [Suspect]
     Indication: HEART TRANSPLANT
     Route: 048

REACTIONS (8)
  - HYPERCHOLESTEROLAEMIA [None]
  - DRUG LEVEL INCREASED [None]
  - CHOLELITHIASIS [None]
  - CORONARY ARTERY DISEASE [None]
  - STOMATITIS [None]
  - CHOLECYSTITIS [None]
  - PNEUMONIA PNEUMOCOCCAL [None]
  - BLOOD TRIGLYCERIDES INCREASED [None]
